FAERS Safety Report 24096417 (Version 1)
Quarter: 2024Q3

REPORT INFORMATION
  Report Type: Spontaneous
  Country: IT (occurrence: IT)
  Receive Date: 20240716
  Receipt Date: 20240716
  Transmission Date: 20241016
  Serious: Yes (Other)
  Sender: RANBAXY
  Company Number: IT-SUN PHARMACEUTICAL INDUSTRIES LTD-2024R1-456335

PATIENT
  Age: 65 Year
  Sex: Male

DRUGS (20)
  1. DOLUTEGRAVIR [Suspect]
     Active Substance: DOLUTEGRAVIR
     Indication: Acquired immunodeficiency syndrome
     Dosage: UNK
     Route: 065
  2. DOLUTEGRAVIR [Suspect]
     Active Substance: DOLUTEGRAVIR
     Indication: Cytomegalovirus infection
  3. DOLUTEGRAVIR [Suspect]
     Active Substance: DOLUTEGRAVIR
     Indication: Cytomegalovirus colitis
  4. DOLUTEGRAVIR [Suspect]
     Active Substance: DOLUTEGRAVIR
     Indication: Epstein-Barr virus infection reactivation
  5. DOLUTEGRAVIR [Suspect]
     Active Substance: DOLUTEGRAVIR
     Indication: Henoch-Schonlein purpura
  6. GANCICLOVIR [Suspect]
     Active Substance: GANCICLOVIR
     Indication: Acquired immunodeficiency syndrome
     Dosage: UNK
     Route: 065
  7. GANCICLOVIR [Suspect]
     Active Substance: GANCICLOVIR
     Indication: Cytomegalovirus infection
  8. GANCICLOVIR [Suspect]
     Active Substance: GANCICLOVIR
     Indication: Cytomegalovirus colitis
  9. GANCICLOVIR [Suspect]
     Active Substance: GANCICLOVIR
     Indication: Epstein-Barr virus infection reactivation
  10. GANCICLOVIR [Suspect]
     Active Substance: GANCICLOVIR
     Indication: Henoch-Schonlein purpura
  11. LAMIVUDINE [Suspect]
     Active Substance: LAMIVUDINE
     Indication: Acquired immunodeficiency syndrome
     Dosage: UNK
     Route: 065
  12. LAMIVUDINE [Suspect]
     Active Substance: LAMIVUDINE
     Indication: Cytomegalovirus infection
  13. LAMIVUDINE [Suspect]
     Active Substance: LAMIVUDINE
     Indication: Cytomegalovirus colitis
  14. LAMIVUDINE [Suspect]
     Active Substance: LAMIVUDINE
     Indication: Epstein-Barr virus infection reactivation
  15. LAMIVUDINE [Suspect]
     Active Substance: LAMIVUDINE
     Indication: Henoch-Schonlein purpura
  16. PREDNISONE [Suspect]
     Active Substance: PREDNISONE
     Indication: Acquired immunodeficiency syndrome
     Dosage: UNK (SLOWLY TAPERED)
     Route: 065
  17. PREDNISONE [Suspect]
     Active Substance: PREDNISONE
     Indication: Cytomegalovirus infection
  18. PREDNISONE [Suspect]
     Active Substance: PREDNISONE
     Indication: Cytomegalovirus colitis
  19. PREDNISONE [Suspect]
     Active Substance: PREDNISONE
     Indication: Epstein-Barr virus infection reactivation
  20. PREDNISONE [Suspect]
     Active Substance: PREDNISONE
     Indication: Henoch-Schonlein purpura

REACTIONS (2)
  - Therapy non-responder [Unknown]
  - Condition aggravated [Unknown]
